FAERS Safety Report 7957635-9 (Version None)
Quarter: 2011Q4

REPORT INFORMATION
  Report Type: 
  Country: None (occurrence: None)
  Receive Date: 20111205
  Receipt Date: 20111125
  Transmission Date: 20120403
  Serious: Yes (Hospitalization)
  Sender: FDA-Public Use
  Company Number: PHHO2011CN09497

PATIENT
  Sex: Female
  Weight: 49 kg

DRUGS (8)
  1. AFINITOR [Suspect]
     Indication: BREAST CANCER METASTATIC
     Dosage: UNK MG, QD
     Route: 048
     Dates: start: 20101210
  2. BLINDED PLACEBO [Suspect]
     Dosage: 5 MG, QD
     Route: 048
     Dates: start: 20110212, end: 20110527
  3. AFINITOR [Suspect]
     Dosage: 5 MG, QD
     Route: 048
     Dates: start: 20110212, end: 20110527
  4. BLINDED NO TREATMENT RECEIVED [Suspect]
     Indication: BREAST CANCER METASTATIC
     Dosage: UNK MG, QD
     Route: 048
     Dates: start: 20101210
  5. BLINDED PLACEBO [Suspect]
     Indication: BREAST CANCER METASTATIC
     Dosage: UNK MG, QD
     Route: 048
     Dates: start: 20101210
  6. COMPARATOR TRASTUZUMAB [Suspect]
     Indication: BREAST CANCER METASTATIC
     Dosage: 98 MG, QW
     Route: 042
     Dates: start: 20101210
  7. PACLITAXEL [Suspect]
     Indication: BREAST CANCER METASTATIC
     Dosage: 87 MG, QW
     Route: 042
     Dates: start: 20101210, end: 20110527
  8. BLINDED NO TREATMENT RECEIVED [Suspect]
     Dosage: 5 MG, QD
     Route: 048
     Dates: start: 20110212, end: 20110527

REACTIONS (1)
  - INTERSTITIAL LUNG DISEASE [None]
